FAERS Safety Report 9023428 (Version 1)
Quarter: 2013Q1

REPORT INFORMATION
  Report Type: Spontaneous
  Country: IT (occurrence: IT)
  Receive Date: 20130121
  Receipt Date: 20130121
  Transmission Date: 20140127
  Serious: Yes (Hospitalization)
  Sender: FDA-Public Use
  Company Number: IT-MYLANLABS-2013S1000849

PATIENT
  Age: 29 Year
  Sex: Female

DRUGS (2)
  1. CLARITHROMYCIN [Suspect]
     Indication: PRODUCT USED FOR UNKNOWN INDICATION
     Route: 048
     Dates: start: 20121231, end: 20121231
  2. LAROXYL [Concomitant]
     Indication: MIGRAINE WITH AURA
     Dosage: 40 MG/ML
     Route: 048

REACTIONS (6)
  - Dyspnoea [Recovered/Resolved]
  - Rash generalised [Recovered/Resolved]
  - Throat tightness [Recovered/Resolved]
  - Vertigo [Recovered/Resolved]
  - Pruritus generalised [Recovered/Resolved]
  - Heart rate increased [Recovered/Resolved]
